FAERS Safety Report 9105837 (Version 1)
Quarter: 2013Q1

REPORT INFORMATION
  Report Type: Spontaneous
  Country: US (occurrence: US)
  Receive Date: 20130220
  Receipt Date: 20130220
  Transmission Date: 20140127
  Serious: No
  Sender: FDA-Public Use
  Company Number: US-PFIZER INC-2013061896

PATIENT
  Age: 65 Year
  Sex: Male
  Weight: 133.33 kg

DRUGS (2)
  1. ACCUPRIL [Suspect]
     Dosage: UNK
  2. DIOVAN [Suspect]
     Dosage: UNK

REACTIONS (1)
  - Drug hypersensitivity [Unknown]
